FAERS Safety Report 8791726 (Version 2)
Quarter: 2012Q4

REPORT INFORMATION
  Report Type: Report from Study
  Country: US (occurrence: US)
  Receive Date: 20120918
  Receipt Date: 20120925
  Transmission Date: 20130627
  Serious: Yes (Hospitalization)
  Sender: FDA-Public Use
  Company Number: US-JNJFOC-20120906831

PATIENT
  Age: 16 Year
  Sex: Male
  Weight: 53 kg

DRUGS (4)
  1. REMICADE [Suspect]
     Indication: CROHN^S DISEASE
     Route: 042
     Dates: start: 20120510
  2. REMICADE [Suspect]
     Indication: CROHN^S DISEASE
     Route: 042
     Dates: start: 20091117
  3. FERROUS SULFATE [Concomitant]
  4. MULTIVITAMINS [Concomitant]

REACTIONS (1)
  - Crohn^s disease [Recovered/Resolved]
